FAERS Safety Report 7480368-2 (Version None)
Quarter: 2011Q2

REPORT INFORMATION
  Report Type: 
  Country: None (occurrence: None)
  Receive Date: 20110504
  Receipt Date: 20110419
  Transmission Date: 20111010
  Serious: Yes (Other)
  Sender: FDA-Public Use
  Company Number: 2011US000043

PATIENT
  Age: 80 Year
  Sex: Male

DRUGS (1)
  1. ENTEREG [Suspect]
     Indication: POSTOPERATIVE ILEUS
     Dosage: 12 MG;	;PO
     Route: 048

REACTIONS (1)
  - MYOCARDIAL INFARCTION [None]
